FAERS Safety Report 8355766-5 (Version None)
Quarter: 2012Q2

REPORT INFORMATION
  Report Type: 
  Country: None (occurrence: None)
  Receive Date: 20120514
  Receipt Date: 20120508
  Transmission Date: 20120825
  Serious: No
  Sender: FDA-Public Use
  Company Number: US-PFIZER INC-2012112544

PATIENT
  Sex: Male
  Weight: 129.25 kg

DRUGS (6)
  1. LIPITOR [Suspect]
     Dosage: HALF TABLET OF 80MG, UNK
     Route: 048
     Dates: start: 20120401
  2. PLAVIX [Concomitant]
     Indication: CARDIAC OPERATION
     Dosage: UNK
  3. FISH OIL [Concomitant]
     Dosage: UNK
  4. METFORMIN [Concomitant]
     Indication: DIABETES MELLITUS
     Dosage: UNK
  5. LEVOTHYROXINE [Concomitant]
     Indication: THYROID DISORDER
     Dosage: UNK
  6. LIPITOR [Suspect]
     Indication: BLOOD CHOLESTEROL INCREASED
     Dosage: 80 MG, 1X/DAY
     Route: 048
     Dates: start: 20020101, end: 20120401

REACTIONS (1)
  - LOW DENSITY LIPOPROTEIN INCREASED [None]
